FAERS Safety Report 22288273 (Version 2)
Quarter: 2023Q2

REPORT INFORMATION
  Report Type: Spontaneous
  Country: PL (occurrence: None)
  Receive Date: 20230505
  Receipt Date: 20230620
  Transmission Date: 20230722
  Serious: Yes (Hospitalization, Other)
  Sender: FDA-Public Use
  Company Number: 2023A100115

PATIENT
  Age: 700 Month
  Sex: Female

DRUGS (5)
  1. FASENRA [Suspect]
     Active Substance: BENRALIZUMAB
     Indication: Asthma
     Route: 058
     Dates: start: 20220531
  2. COMBOTEROL [Concomitant]
     Indication: Asthma
     Dosage: 250+25 MCG
  3. ALVESCO [Concomitant]
     Active Substance: CICLESONIDE
     Indication: Asthma
     Dosage: 160MCG
  4. FOSTEX [Concomitant]
     Indication: Asthma
     Dosage: 100+6 MCG, DAILY
  5. ASTMODIL [Concomitant]
     Indication: Asthma
     Dosage: 10MG
     Route: 048

REACTIONS (1)
  - Invasive ductal breast carcinoma [Not Recovered/Not Resolved]

NARRATIVE: CASE EVENT DATE: 20221201
